FAERS Safety Report 9892202 (Version 1)
Quarter: 2014Q1

REPORT INFORMATION
  Report Type: Spontaneous
  Country: GB (occurrence: GB)
  Receive Date: 20140212
  Receipt Date: 20140212
  Transmission Date: 20141002
  Serious: Yes (Other)
  Sender: FDA-Public Use
  Company Number: GB-ASTRAZENECA-2014SE08215

PATIENT
  Age: 89 Year
  Sex: Male
  Weight: 75 kg

DRUGS (2)
  1. TICAGRELOR [Suspect]
     Route: 048
     Dates: start: 20120928, end: 20140126
  2. SLOZEM [Concomitant]

REACTIONS (2)
  - Urinary incontinence [Unknown]
  - Prostatomegaly [Not Recovered/Not Resolved]
